FAERS Safety Report 22314966 (Version 1)
Quarter: 2023Q2

REPORT INFORMATION
  Report Type: Spontaneous
  Country: CN (occurrence: CN)
  Receive Date: 20230512
  Receipt Date: 20230512
  Transmission Date: 20230722
  Serious: Yes (Other)
  Sender: FDA-Public Use
  Company Number: CN-009507513-2305CHN003033

PATIENT
  Age: 68 Year
  Sex: Female
  Weight: 46.5 kg

DRUGS (2)
  1. CILASTATIN SODIUM\IMIPENEM [Suspect]
     Active Substance: CILASTATIN SODIUM\IMIPENEM
     Indication: Anti-infective therapy
     Dosage: 500 MG, QID, IV DRIP
     Route: 041
     Dates: start: 20230401, end: 20230408
  2. VANCOMYCIN [Suspect]
     Active Substance: VANCOMYCIN
     Indication: Anti-infective therapy
     Dates: end: 20230403

REACTIONS (3)
  - Epilepsy [Recovering/Resolving]
  - Delirium [Unknown]
  - Drug level increased [Unknown]

NARRATIVE: CASE EVENT DATE: 20230401
